FAERS Safety Report 4400933-6 (Version None)
Quarter: 2004Q3

REPORT INFORMATION
  Report Type: 
  Country: None (occurrence: None)
  Receive Date: 20040907
  Receipt Date: 20030818
  Transmission Date: 20050211
  Serious: No
  Sender: FDA-Public Use
  Company Number: US-BRISTOL-MYERS SQUIBB COMPANY-12357612

PATIENT
  Age: 71 Year
  Sex: Female
  Weight: 93 kg

DRUGS (5)
  1. COUMADIN [Suspect]
     Indication: CARDIAC PACEMAKER INSERTION
     Dosage: DOSAGE: ONE 5 MG TAB ALTERNATING WITH 1/2 5 MG TAB DAILY
     Route: 048
  2. COUMADIN [Suspect]
     Indication: AORTIC VALVE REPLACEMENT
     Dosage: DOSAGE: ONE 5 MG TAB ALTERNATING WITH 1/2 5 MG TAB DAILY
     Route: 048
  3. COREG [Concomitant]
  4. ALTACE [Concomitant]
  5. AMIODARONE HCL [Concomitant]

REACTIONS (2)
  - MOUTH HAEMORRHAGE [None]
  - SALIVARY HYPERSECRETION [None]
